FAERS Safety Report 25105503 (Version 1)
Quarter: 2025Q1

REPORT INFORMATION
  Report Type: Spontaneous
  Country: US (occurrence: US)
  Receive Date: 20250321
  Receipt Date: 20250321
  Transmission Date: 20250409
  Serious: No
  Sender: EMD SERONO INC
  Company Number: US-Merck Healthcare KGaA-2025012645

PATIENT
  Age: 76 Year
  Sex: Male

DRUGS (1)
  1. BAVENCIO [Suspect]
     Active Substance: AVELUMAB
     Indication: Neuroendocrine carcinoma of the skin

REACTIONS (4)
  - Hypersomnia [Unknown]
  - Decreased appetite [Unknown]
  - Back pain [Unknown]
  - Fatigue [Unknown]
